FAERS Safety Report 10099508 (Version 1)
Quarter: 2014Q2

REPORT INFORMATION
  Report Type: Spontaneous
  Country: NL (occurrence: NL)
  Receive Date: 20140423
  Receipt Date: 20140423
  Transmission Date: 20141212
  Serious: Yes (Other)
  Sender: FDA-Public Use
  Company Number: NL-UCBSA-118837

PATIENT
  Age: 20 Year
  Sex: Male

DRUGS (1)
  1. METHYLPHENIDATE HYDROCHLORIDE [Suspect]
     Route: 048

REACTIONS (8)
  - Paraesthesia [Unknown]
  - Hyperhidrosis [Unknown]
  - Nausea [Unknown]
  - Hypertension [Unknown]
  - Anxiety [Unknown]
  - Abdominal pain [Unknown]
  - Peripheral coldness [Unknown]
  - Palpitations [Unknown]
